FAERS Safety Report 4905888-3 (Version None)
Quarter: 2006Q1

REPORT INFORMATION
  Report Type: 
  Country: None (occurrence: None)
  Receive Date: 20060113
  Receipt Date: 20051012
  Transmission Date: 20060701
  Serious: No
  Sender: FDA-Public Use
  Company Number: 2005SP002817

PATIENT
  Age: 55 Year
  Sex: Male
  Weight: 78.9259 kg

DRUGS (2)
  1. LUNESTA [Suspect]
     Indication: INSOMNIA
     Dosage: 2 MG; HS; ORAL
     Route: 048
     Dates: start: 20050601, end: 20050101
  2. LUNESTA [Suspect]
     Indication: INSOMNIA
     Dosage: 2 MG; HS; ORAL
     Route: 048
     Dates: start: 20050801, end: 20050101

REACTIONS (2)
  - MUSCULOSKELETAL CHEST PAIN [None]
  - PALPITATIONS [None]
